FAERS Safety Report 7404696-1 (Version None)
Quarter: 2011Q2

REPORT INFORMATION
  Report Type: 
  Country: None (occurrence: None)
  Receive Date: 20110411
  Receipt Date: 20110331
  Transmission Date: 20111010
  Serious: No
  Sender: FDA-Public Use
  Company Number: US-BIOGENIDEC-2011BI012482

PATIENT
  Age: 51 Year
  Sex: Male

DRUGS (2)
  1. PROZAC [Concomitant]
     Indication: PRODUCT USED FOR UNKNOWN INDICATION
  2. TYSABRI [Suspect]
     Indication: MULTIPLE SCLEROSIS
     Route: 042
     Dates: start: 20100719

REACTIONS (6)
  - ALTERED VISUAL DEPTH PERCEPTION [None]
  - DEPRESSION [None]
  - BACK PAIN [None]
  - PAIN IN EXTREMITY [None]
  - DIZZINESS [None]
  - INSOMNIA [None]
